FAERS Safety Report 18778782 (Version 1)
Quarter: 2021Q1

REPORT INFORMATION
  Report Type: Spontaneous
  Country: US (occurrence: US)
  Receive Date: 20210124
  Receipt Date: 20210124
  Transmission Date: 20210419
  Serious: Yes (Hospitalization, Other)
  Sender: FDA-Public Use
  Company Number: NVSC2021US013689

PATIENT
  Age: 55 Year
  Sex: Male

DRUGS (8)
  1. TACROLIMUS. [Interacting]
     Active Substance: TACROLIMUS
     Indication: IMMUNOSUPPRESSANT DRUG THERAPY
     Dosage: 2 MG, BID (RESTARTED)
     Route: 065
  2. HALOPERIDOL. [Interacting]
     Active Substance: HALOPERIDOL
     Indication: SUICIDAL IDEATION
     Dosage: UNK
     Route: 065
  3. HYDROXYZINE [Interacting]
     Active Substance: HYDROXYZINE HYDROCHLORIDE
     Indication: SUICIDAL IDEATION
     Dosage: UNK
     Route: 065
  4. CITALOPRAM [Interacting]
     Active Substance: CITALOPRAM HYDROBROMIDE
     Indication: SUICIDAL IDEATION
     Dosage: UNK
     Route: 065
  5. TACROLIMUS. [Suspect]
     Active Substance: TACROLIMUS
     Indication: RENAL TRANSPLANT
     Dosage: UNK
     Route: 065
  6. FLUOXETINE [Interacting]
     Active Substance: FLUOXETINE HYDROCHLORIDE
     Indication: SUICIDAL IDEATION
     Dosage: UNK
     Route: 065
  7. QUETIAPINE. [Suspect]
     Active Substance: QUETIAPINE
     Indication: SUICIDAL IDEATION
     Dosage: UNK
     Route: 065
  8. BENZTROPINE. [Interacting]
     Active Substance: BENZTROPINE
     Indication: SUICIDAL IDEATION
     Dosage: UNK
     Route: 065

REACTIONS (4)
  - Tremor [Recovered/Resolved]
  - Toxicity to various agents [Recovered/Resolved]
  - Drug interaction [Unknown]
  - Acute kidney injury [Unknown]
